FAERS Safety Report 6370286-5 (Version None)
Quarter: 2009Q3

REPORT INFORMATION
  Report Type: 
  Country: None (occurrence: None)
  Receive Date: 20090921
  Receipt Date: 20090921
  Transmission Date: 20100115
  Serious: No
  Sender: FDA-Public Use
  Company Number: None

PATIENT
  Age: 24 Year
  Sex: Female
  Weight: 55.3388 kg

DRUGS (1)
  1. OCELLA (GENERIC FOR YASMIN) [Suspect]
     Indication: MENSTRUATION IRREGULAR
     Dosage: ONE TABLET ONE TAB DAY ORALLY
     Route: 048
     Dates: start: 20090201

REACTIONS (2)
  - METRORRHAGIA [None]
  - PRODUCT SUBSTITUTION ISSUE [None]
